FAERS Safety Report 8457817-6 (Version None)
Quarter: 2012Q2

REPORT INFORMATION
  Report Type: 
  Country: None (occurrence: None)
  Receive Date: 20120622
  Receipt Date: 20120612
  Transmission Date: 20120825
  Serious: Yes (Hospitalization)
  Sender: FDA-Public Use
  Company Number: US-BAYER-2012-014326

PATIENT
  Age: 23 Year
  Sex: Female
  Weight: 72.562 kg

DRUGS (11)
  1. CODEINE [Concomitant]
  2. MULTI-VITAMINS [Concomitant]
  3. HERBAL PREPARATION [Concomitant]
  4. LEVAQUIN [Concomitant]
     Indication: URINARY TRACT INFECTION
  5. VICODIN [Concomitant]
     Indication: PAIN
  6. YAZ [Suspect]
     Indication: CONTRACEPTION
     Dosage: UNK
     Dates: start: 20051201, end: 20060601
  7. YAZ [Suspect]
  8. YAZ [Suspect]
     Indication: PREMENSTRUAL SYNDROME
     Dosage: UNK
     Dates: start: 20071001, end: 20081001
  9. TRAMADOL HCL [Concomitant]
  10. YASMIN [Suspect]
     Indication: PREMENSTRUAL SYNDROME
     Dosage: UNK
     Dates: start: 20051201, end: 20060601
  11. YASMIN [Suspect]
     Dosage: UNK
     Dates: start: 20071001, end: 20081001

REACTIONS (4)
  - PAIN [None]
  - GALLBLADDER DISORDER [None]
  - EMOTIONAL DISTRESS [None]
  - BILIARY DYSKINESIA [None]
